FAERS Safety Report 21474628 (Version 1)
Quarter: 2022Q4

REPORT INFORMATION
  Report Type: Report from Study
  Country: US (occurrence: US)
  Receive Date: 20221018
  Receipt Date: 20221018
  Transmission Date: 20230113
  Serious: No
  Sender: FDA-Public Use
  Company Number: US-ABBVIE-4155467

PATIENT
  Sex: Female

DRUGS (6)
  1. SKYRIZI [Suspect]
     Active Substance: RISANKIZUMAB-RZAA
     Indication: Psoriasis
     Dosage: WEEK 4 AND THEN EVERY 12 WEEKS THEREAFTER?150 MG
     Route: 058
     Dates: start: 20211123
  2. ENBREL [Concomitant]
     Active Substance: ETANERCEPT
     Indication: Product used for unknown indication
  3. PROAIR HFA AER 108 (90 MC) [Concomitant]
     Indication: Product used for unknown indication
  4. METOPROLOL S TB2 100MG [Concomitant]
     Indication: Product used for unknown indication
  5. MIRENA (52 M IUD 20MCG/24) [Concomitant]
     Indication: Product used for unknown indication
  6. TYLENOL TAB 325MG [Concomitant]
     Indication: Product used for unknown indication
     Route: 048

REACTIONS (1)
  - Injection site pruritus [Not Recovered/Not Resolved]
